FAERS Safety Report 19725132 (Version 1)
Quarter: 2021Q3

REPORT INFORMATION
  Report Type: Other
  Country: PL (occurrence: PL)
  Receive Date: 20210820
  Receipt Date: 20210820
  Transmission Date: 20211014
  Serious: Yes (Other)
  Sender: FDA-Public Use
  Company Number: PL-CELLTRION INC.-2021PL011165

PATIENT

DRUGS (2)
  1. EUTHYROX N [Concomitant]
     Active Substance: LEVOTHYROXINE SODIUM
     Dosage: UNK, QD
  2. TRASTUZUMAB (UNKNOWN) [Suspect]
     Active Substance: TRASTUZUMAB
     Indication: BREAST CANCER
     Dosage: UNK
     Route: 041
     Dates: start: 201705

REACTIONS (2)
  - Recurrent cancer [Unknown]
  - Polyneuropathy [Unknown]

NARRATIVE: CASE EVENT DATE: 202001
